FAERS Safety Report 10370156 (Version 1)
Quarter: 2014Q1

REPORT INFORMATION
  Report Type: Spontaneous
  Country: US (occurrence: None)
  Receive Date: 20140306
  Receipt Date: 20140306
  Transmission Date: 20141002
  Serious: Yes (Hospitalization, Other)
  Sender: FDA-Public Use
  Company Number: 163-21880-13071380

PATIENT
  Age: 70 Year
  Sex: Male

DRUGS (8)
  1. REVLIMID [Suspect]
     Indication: PLASMA CELL MYELOMA
     Dosage: 25 MG, 14 IN 21 D, PO
     Route: 048
     Dates: start: 201303, end: 201305
  2. LYRICA (PREGABALIN) [Concomitant]
  3. LOMOTIL (LOMOTIL) [Concomitant]
  4. NAUSEA MEDICATION (ANTIEMETICS AND ANTINAUSEANTS) [Concomitant]
  5. VELCADE (BORTEZOMIB) [Concomitant]
  6. DEXAMETHASONE (DEXAMETHASONE) [Concomitant]
  7. FLUDROCORTISONE ACETATE (FLUDROCORTISONE ACETATE) [Concomitant]
  8. IBUPROFEN (IBUPROFEN) [Concomitant]

REACTIONS (15)
  - Blood potassium decreased [None]
  - Dehydration [None]
  - Weight decreased [None]
  - Functional gastrointestinal disorder [None]
  - Dysstasia [None]
  - Dysphagia [None]
  - Vomiting [None]
  - Diarrhoea [None]
  - Decreased appetite [None]
  - Abdominal pain upper [None]
  - Asthenia [None]
  - Hypersomnia [None]
  - Blood pressure fluctuation [None]
  - Neuropathy peripheral [None]
  - Influenza [None]
